FAERS Safety Report 18960079 (Version 1)
Quarter: 2021Q1

REPORT INFORMATION
  Report Type: Spontaneous
  Country: GB (occurrence: GB)
  Receive Date: 20210302
  Receipt Date: 20210302
  Transmission Date: 20210420
  Serious: Yes (Hospitalization, Other)
  Sender: FDA-Public Use
  Company Number: GB-MYLANLABS-2021M1011940

PATIENT
  Age: 42 Year
  Sex: Male

DRUGS (2)
  1. OLANZAPINE. [Suspect]
     Active Substance: OLANZAPINE
     Indication: PRODUCT USED FOR UNKNOWN INDICATION
     Dosage: 20 MILLIGRAM, QD (LONG?TERM TREATMENT)
  2. DEPIXOL                            /00109703/ [Concomitant]
     Active Substance: FLUPENTIXOL DECANOATE
     Dosage: 50 MILLIGRAM, PM (50MG FORTNIGHTLY)
     Dates: end: 20210127

REACTIONS (2)
  - Metabolic acidosis [Unknown]
  - Pancreatitis acute [Not Recovered/Not Resolved]

NARRATIVE: CASE EVENT DATE: 20210209
